FAERS Safety Report 20130776 (Version 6)
Quarter: 2023Q1

REPORT INFORMATION
  Report Type: Report from Study
  Country: US (occurrence: US)
  Receive Date: 20211130
  Receipt Date: 20230213
  Transmission Date: 20230417
  Serious: Yes (Hospitalization, Other)
  Sender: FDA-Public Use
  Company Number: US-TAKEDA-2015BLT003698

PATIENT
  Age: 76 Year
  Sex: Female

DRUGS (1)
  1. HUMAN IMMUNOGLOBULIN G [Suspect]
     Active Substance: HUMAN IMMUNOGLOBULIN G
     Indication: Immunodeficiency common variable
     Dosage: UNK
     Route: 042

REACTIONS (11)
  - Spinal fracture [Unknown]
  - Hepatic cirrhosis [Unknown]
  - Multiple fractures [Unknown]
  - Pancreatic carcinoma [Unknown]
  - Hepatic cancer [Unknown]
  - Blood pressure decreased [Not Recovered/Not Resolved]
  - Influenza [Unknown]
  - Gait inability [Unknown]
  - Osteoporosis [Unknown]
  - COVID-19 [Unknown]
  - Malaise [Unknown]

NARRATIVE: CASE EVENT DATE: 20150901
